FAERS Safety Report 16521385 (Version 2)
Quarter: 2019Q3

REPORT INFORMATION
  Report Type: Report from Study
  Country: PL (occurrence: PL)
  Receive Date: 20190703
  Receipt Date: 20190808
  Transmission Date: 20191004
  Serious: Yes (Hospitalization)
  Sender: FDA-Public Use
  Company Number: PL-ROCHE-2343255

PATIENT
  Age: 53 Year
  Sex: Female
  Weight: 54 kg

DRUGS (14)
  1. PERTUZUMAB. [Suspect]
     Active Substance: PERTUZUMAB
     Dosage: AT 11:30
     Route: 042
     Dates: start: 20190527
  2. TRASTUZUMAB. [Suspect]
     Active Substance: TRASTUZUMAB
     Dosage: AT 14:00
     Route: 042
     Dates: start: 20190318
  3. DOXORUBICIN [Suspect]
     Active Substance: DOXORUBICIN
     Indication: HER-2 POSITIVE BREAST CANCER
     Dosage: ON 20/DEC/2018, MOST RECENT DOSE OF DOXORUBICIN (96 MG) WAS ADMINISTERED PRIOR TO SERIOUS EVENT ONSE
     Route: 042
     Dates: start: 20181017
  4. BIOFAZOLIN [CEFAZOLIN SODIUM] [Concomitant]
     Route: 042
     Dates: start: 20190617, end: 20190617
  5. DOCETAXEL. [Suspect]
     Active Substance: DOCETAXEL
     Indication: HER-2 POSITIVE BREAST CANCER
     Dosage: ON DAY 1 OF CYCLE 5 ?LAST DOSE OF DOCETAXEL ON 18/MAR/2019 AT 16:00, ADMINISTERED PRIOR TO SERIOUS E
     Route: 042
     Dates: start: 20190110
  6. CIPRONEX [CIPROFLOXACIN] [Concomitant]
     Route: 048
     Dates: start: 20190618
  7. DORMICUM [MIDAZOLAM] [Concomitant]
     Active Substance: MIDAZOLAM HYDROCHLORIDE
     Indication: PREMEDICATION
     Route: 048
     Dates: start: 20190617, end: 20190617
  8. TRASTUZUMAB. [Suspect]
     Active Substance: TRASTUZUMAB
     Indication: HER-2 POSITIVE BREAST CANCER
     Dosage: (DOSE AS PER PROTOCOL: 8-MG/KG IV LOADING DOSE AND THEN 6 MG/KG IV MAINTENANCE DOSE Q3W).?LAST DOSE
     Route: 042
     Dates: start: 20190110
  9. CYCLOPHOSPHAMIDE. [Suspect]
     Active Substance: CYCLOPHOSPHAMIDE
     Indication: HER-2 POSITIVE BREAST CANCER
     Dosage: MOST RECENT DOES OF CYCLOPHOSPHAMIDE (960 MG) ON 20/DEC/2018 AT 14:30.
     Route: 042
     Dates: start: 20181017
  10. ONDANSETRON [Concomitant]
     Active Substance: ONDANSETRON
     Route: 042
     Dates: start: 20181017
  11. DEXAVEN [Concomitant]
     Active Substance: DEXAMETHASONE
     Route: 042
     Dates: start: 20181017
  12. PARACETAMOL [Concomitant]
     Active Substance: ACETAMINOPHEN
     Route: 048
     Dates: start: 20190617, end: 20190617
  13. PERTUZUMAB. [Suspect]
     Active Substance: PERTUZUMAB
     Indication: HER-2 POSITIVE BREAST CANCER
     Dosage: (DOSE AS PER PROTOCOL: DOSE OF 840-MG IV LOADING DOSE AND THEN 420-MG IV MAINTENANCE DOSE Q3W).?LAST
     Route: 042
     Dates: start: 20190110
  14. TRASTUZUMAB. [Suspect]
     Active Substance: TRASTUZUMAB
     Indication: HER-2 POSITIVE BREAST CANCER
     Dosage: (DOSE AS PER PROTOCOL: 600 MG TRASTUZUMAB SC (IRRESPECTIVE OF THE PATIENT^S WEIGHT)).?LAST DOSE OF S
     Route: 058
     Dates: start: 20190506

REACTIONS (1)
  - Breast haematoma [Recovered/Resolved]

NARRATIVE: CASE EVENT DATE: 20190616
